FAERS Safety Report 15772314 (Version 3)
Quarter: 2019Q1

REPORT INFORMATION
  Report Type: Report from Study
  Country: US (occurrence: US)
  Receive Date: 20181228
  Receipt Date: 20190304
  Transmission Date: 20190417
  Serious: Yes (Death, Life-Threatening, Hospitalization, Other)
  Sender: FDA-Public Use
  Company Number: US-ACTELION-A-US2017-163606

PATIENT
  Age: 87 Year
  Sex: Male
  Weight: 72.11 kg

DRUGS (12)
  1. ASPIRIN. [Concomitant]
     Active Substance: ASPIRIN
     Dosage: UNK
     Dates: start: 20141203
  2. FUROSEMIDE. [Concomitant]
     Active Substance: FUROSEMIDE
     Dosage: 20 MG, QD
  3. AMBRISENTAN [Concomitant]
     Active Substance: AMBRISENTAN
     Dosage: 10 MG, QD
     Dates: start: 20141008
  4. DILTIAZEM. [Concomitant]
     Active Substance: DILTIAZEM
     Dosage: 120 MG, QD
     Dates: start: 20170724
  5. UPTRAVI [Suspect]
     Active Substance: SELEXIPAG
     Indication: PULMONARY ARTERIAL HYPERTENSION
     Dosage: 1600 MCG, BID
     Route: 048
     Dates: start: 20170320, end: 20181221
  6. LOPERAMIDE [Concomitant]
     Active Substance: LOPERAMIDE
     Dosage: 2 MG, UNK
     Dates: start: 20170518
  7. ALLOPURINOL. [Concomitant]
     Active Substance: ALLOPURINOL
     Dosage: 100 MG, QD
     Dates: start: 20161212
  8. FERROUS SULFATE. [Concomitant]
     Active Substance: FERROUS SULFATE
     Dosage: 325 MG, QAM
  9. WARFARIN [Concomitant]
     Active Substance: WARFARIN
     Dosage: 2.5 MG
  10. TADALAFIL. [Concomitant]
     Active Substance: TADALAFIL
     Dosage: 20 MG, QD
     Dates: start: 20140814
  11. METOLAZONE. [Concomitant]
     Active Substance: METOLAZONE
     Dosage: 2.5 MG, QD
  12. MULTIVITAMIN [Concomitant]
     Active Substance: VITAMINS
     Dosage: UNK
     Dates: start: 20130408

REACTIONS (48)
  - Angiodysplasia [Recovered/Resolved]
  - Cellulitis [Unknown]
  - Acute kidney injury [Unknown]
  - Dehydration [Unknown]
  - Dyspnoea [Unknown]
  - Productive cough [Unknown]
  - Gastric polyps [Recovered/Resolved]
  - Haemoglobin decreased [Unknown]
  - Osteoarthritis [Unknown]
  - Pleural thickening [Unknown]
  - Haematuria [Unknown]
  - Rales [Unknown]
  - Lower gastrointestinal haemorrhage [Recovered/Resolved]
  - Atelectasis [Unknown]
  - Coagulopathy [Unknown]
  - Scrotal swelling [Unknown]
  - Testicular swelling [Unknown]
  - Oedema [Unknown]
  - Dry eye [Unknown]
  - Cough [Unknown]
  - Chromaturia [Unknown]
  - Chronic obstructive pulmonary disease [Fatal]
  - Pneumonia [Unknown]
  - Urinary tract infection [Unknown]
  - Haemorrhoids [Recovered/Resolved]
  - Diverticulitis [Recovered/Resolved]
  - Radiation proctitis [Recovered/Resolved]
  - Erythema [Unknown]
  - Chronic kidney disease [Unknown]
  - Cataract [Unknown]
  - Acute respiratory failure [Unknown]
  - Rectal haemorrhage [Recovered/Resolved]
  - Scrotal oedema [Unknown]
  - Synovial cyst [Unknown]
  - Dysuria [Unknown]
  - Dermatitis exfoliative generalised [Unknown]
  - Petechiae [Unknown]
  - Hypervolaemia [Unknown]
  - Hypoxia [Fatal]
  - Respiratory failure [Unknown]
  - Sleep apnoea syndrome [Unknown]
  - Peripheral swelling [Unknown]
  - Hydrocele [Unknown]
  - Cataract operation [Unknown]
  - Diarrhoea [Unknown]
  - Haematochezia [Recovered/Resolved]
  - Pneumonitis [Unknown]
  - Pleural effusion [Unknown]

NARRATIVE: CASE EVENT DATE: 20170916
